FAERS Safety Report 8010181-9 (Version None)
Quarter: 2011Q4

REPORT INFORMATION
  Report Type: 
  Country: None (occurrence: None)
  Receive Date: 20111221
  Receipt Date: 20111212
  Transmission Date: 20120403
  Serious: Yes (Life-Threatening, Other)
  Sender: FDA-Public Use
  Company Number: 2007SP000488

PATIENT
  Age: 42 Year
  Sex: Female
  Weight: 66 kg

DRUGS (10)
  1. PREDNISOLONE [Concomitant]
  2. BISOLVON [Concomitant]
  3. SUCRALFATE [Concomitant]
  4. TEMODAL [Suspect]
     Indication: ANAPLASTIC ASTROCYTOMA
     Dosage: 150 MG/M2;QD;PO
     Route: 048
     Dates: start: 20061228, end: 20070101
  5. NIDRAN [Concomitant]
  6. RADIOTHERAPY [Concomitant]
  7. KYTRIL [Concomitant]
  8. ZANTAC [Concomitant]
  9. LEVOTHYROXINE SODIUM [Concomitant]
  10. PHENYTOIN SODIUM CAP [Concomitant]

REACTIONS (4)
  - DEPRESSED LEVEL OF CONSCIOUSNESS [None]
  - INTRACRANIAL TUMOUR HAEMORRHAGE [None]
  - LYMPHOCYTE COUNT DECREASED [None]
  - HEPATIC FUNCTION ABNORMAL [None]
